FAERS Safety Report 10247719 (Version 1)
Quarter: 2014Q2

REPORT INFORMATION
  Report Type: Report from Study
  Country: GB (occurrence: GB)
  Receive Date: 20140619
  Receipt Date: 20140619
  Transmission Date: 20141212
  Serious: No
  Sender: FDA-Public Use
  Company Number: PHHY2014GB074617

PATIENT
  Age: 23 Year
  Sex: Female
  Weight: 77.7 kg

DRUGS (5)
  1. SOMATROPIN [Suspect]
     Indication: GROWTH HORMONE DEFICIENCY
     Dosage: 0.6 MG, UNK
     Dates: start: 20100908, end: 201010
  2. METHYLDOPA [Suspect]
     Indication: GESTATIONAL HYPERTENSION
     Dosage: 500 MG, QD
     Route: 048
     Dates: start: 201202
  3. HYDROCORTISON [Suspect]
     Indication: HYPOPITUITARISM
     Dosage: 10 MG, QD
     Route: 048
  4. LEVOTHYROXINE [Suspect]
     Indication: HYPOPITUITARISM
     Dosage: 75 MG, QD
     Route: 048
     Dates: start: 20130404
  5. PENICILLIN NOS [Suspect]
     Indication: PROPHYLAXIS
     Route: 048

REACTIONS (1)
  - Maternal exposure during pregnancy [Unknown]
